FAERS Safety Report 6159627-1 (Version None)
Quarter: 2009Q2

REPORT INFORMATION
  Report Type: 
  Country: None (occurrence: None)
  Receive Date: 20090415
  Receipt Date: 20090415
  Transmission Date: 20091009
  Serious: Yes (Hospitalization)
  Sender: FDA-Public Use
  Company Number: None

PATIENT
  Sex: Female
  Weight: 61.1 kg

DRUGS (2)
  1. MELPHALAN [Suspect]
     Dosage: 162 MG
     Dates: end: 20090303
  2. G-CSF (FILGRASTIM, AMGEN) [Suspect]
     Dosage: 289 MCG
     Dates: end: 20090325

REACTIONS (6)
  - CLOSTRIDIAL INFECTION [None]
  - ENCEPHALOPATHY [None]
  - MUCOSAL INFLAMMATION [None]
  - NEUTROPENIA [None]
  - POST PROCEDURAL COMPLICATION [None]
  - PYREXIA [None]
